FAERS Safety Report 23462724 (Version 1)
Quarter: 2024Q1

REPORT INFORMATION
  Report Type: Spontaneous
  Country: US (occurrence: None)
  Receive Date: 20240131
  Receipt Date: 20240131
  Transmission Date: 20240409
  Serious: Yes (Other)
  Sender: FDA-Public Use
  Company Number: None

PATIENT
  Age: 84 Year
  Sex: Female

DRUGS (13)
  1. IMATINIB MESYLATE [Suspect]
     Active Substance: IMATINIB MESYLATE
     Indication: Plasma cell myeloma
     Dosage: FREQUENCY : DAILY;?
     Route: 048
     Dates: start: 20160509
  2. IMATINIB MESYLATE [Suspect]
     Active Substance: IMATINIB MESYLATE
     Dosage: FREQUENCY : DAILY;?
     Route: 048
  3. ALEVE [Concomitant]
     Active Substance: NAPROXEN SODIUM
  4. AMOXICILLIN [Concomitant]
  5. CHLORHEX GLU SOL [Concomitant]
  6. GLEEVEC [Concomitant]
     Active Substance: IMATINIB MESYLATE
  7. IBUPROFEN [Concomitant]
  8. IRON [Concomitant]
  9. LEVOTHYROXIN [Concomitant]
  10. LEVOXYL [Concomitant]
  11. POTASSIUM [Concomitant]
  12. TRIAZOLAM [Concomitant]
  13. VITAMIN B12 [Concomitant]
     Active Substance: CYANOCOBALAMIN

REACTIONS (2)
  - Nausea [None]
  - Intentional dose omission [None]

NARRATIVE: CASE EVENT DATE: 20240129
